FAERS Safety Report 11549675 (Version 1)
Quarter: 2015Q3

REPORT INFORMATION
  Report Type: Spontaneous
  Country: US (occurrence: US)
  Receive Date: 20150924
  Receipt Date: 20150924
  Transmission Date: 20151125
  Serious: No
  Sender: FDA-Public Use
  Company Number: US-INCYTE CORPORATION-2015IN003651

PATIENT
  Sex: Female

DRUGS (5)
  1. ALLOPURINOL. [Concomitant]
     Active Substance: ALLOPURINOL
  2. ASPIRIN. [Concomitant]
     Active Substance: ASPIRIN
  3. BISOPROLOL/HYDROCHLOROTHIAZID [Concomitant]
  4. LYRICA [Concomitant]
     Active Substance: PREGABALIN
  5. JAKAFI [Suspect]
     Active Substance: RUXOLITINIB
     Indication: POLYCYTHAEMIA VERA
     Dosage: 10 MG, BID
     Route: 048
     Dates: start: 20150714

REACTIONS (2)
  - Metrorrhagia [Not Recovered/Not Resolved]
  - Contusion [Not Recovered/Not Resolved]
